FAERS Safety Report 16757965 (Version 1)
Quarter: 2019Q3

REPORT INFORMATION
  Report Type: Spontaneous
  Country: BR (occurrence: BR)
  Receive Date: 20190830
  Receipt Date: 20190830
  Transmission Date: 20191005
  Serious: Yes (Life-Threatening, Hospitalization, Other)
  Sender: FDA-Public Use
  Company Number: BR-SA-2019SA238957

PATIENT
  Sex: Male
  Weight: 77 kg

DRUGS (3)
  1. CLEXANE [Suspect]
     Active Substance: ENOXAPARIN SODIUM
     Indication: ANTICOAGULANT THERAPY
     Dosage: UNK, QD (IN MORNING)
     Route: 058
     Dates: start: 20190607, end: 20190808
  2. SELOZOK [Concomitant]
     Active Substance: METOPROLOL SUCCINATE
     Dosage: UNK UNK, BID
     Route: 048
     Dates: start: 201906
  3. ANCORON [Concomitant]
     Active Substance: AMIODARONE HYDROCHLORIDE
     Dosage: UNK UNK, QD
     Route: 048
     Dates: start: 201906

REACTIONS (9)
  - Jaundice [Unknown]
  - Haemorrhage [Unknown]
  - Pain [Recovering/Resolving]
  - Perforation [Unknown]
  - Platelet count decreased [Unknown]
  - Hepatic haematoma [Recovering/Resolving]
  - Hypovolaemic shock [Unknown]
  - Abdominal distension [Unknown]
  - Skin discolouration [Unknown]
